FAERS Safety Report 24961032 (Version 2)
Quarter: 2025Q3

REPORT INFORMATION
  Report Type: Report from Study
  Country: EG (occurrence: EG)
  Receive Date: 20250212
  Receipt Date: 20250805
  Transmission Date: 20251020
  Serious: Yes (Hospitalization, Other)
  Sender: NOVARTIS
  Company Number: EG-002147023-NVSC2022EG184480

PATIENT
  Age: 78 Year
  Sex: Female

DRUGS (14)
  1. KISQALI [Suspect]
     Active Substance: RIBOCICLIB SUCCINATE
     Indication: Breast cancer metastatic
     Route: 048
     Dates: start: 202108
  2. KISQALI [Suspect]
     Active Substance: RIBOCICLIB SUCCINATE
     Indication: Metastases to bone
     Route: 065
     Dates: start: 202108
  3. KISQALI [Suspect]
     Active Substance: RIBOCICLIB SUCCINATE
     Route: 065
     Dates: start: 202108
  4. KISQALI [Suspect]
     Active Substance: RIBOCICLIB SUCCINATE
     Dosage: 2 DOSAGE FORM, QD  (2 TABLETS, FOR 21 DAYS AND 1 WEEK OFF)
     Route: 048
     Dates: start: 202108
  5. KISQALI [Suspect]
     Active Substance: RIBOCICLIB SUCCINATE
     Dosage: 3 DOSAGE FORM, QD (3 TABLETS ONCE DAILY FOR 21 DAYS AND ONE WEEK OFF)
     Route: 048
     Dates: start: 2022, end: 202504
  6. KISQALI [Suspect]
     Active Substance: RIBOCICLIB SUCCINATE
     Route: 048
     Dates: start: 202504, end: 202505
  7. KISQALI [Suspect]
     Active Substance: RIBOCICLIB SUCCINATE
     Route: 048
     Dates: start: 202505
  8. VITAMIN C [Concomitant]
     Active Substance: ASCORBIC ACID
     Indication: Supplementation therapy
     Dosage: UNK, QD
     Route: 065
     Dates: start: 202110
  9. DIETARY SUPPLEMENT [Concomitant]
     Active Substance: DIETARY SUPPLEMENT
     Indication: Supplementation therapy
     Route: 065
     Dates: start: 202110
  10. CALCIUM [Concomitant]
     Active Substance: CALCIUM
     Indication: Supplementation therapy
     Dosage: UNK, QD
     Route: 065
     Dates: start: 202110
  11. CALCIUM [Concomitant]
     Active Substance: CALCIUM
     Indication: Metastases to bone
     Dosage: 1 DOSAGE FORM, QD (EVERY 2 DAYS)
     Route: 065
  12. CALCIUM [Concomitant]
     Active Substance: CALCIUM
     Indication: Prophylaxis
  13. CALCIUM [Concomitant]
     Active Substance: CALCIUM
     Indication: Metastases to bone
     Dosage: 1 DOSAGE FORM, Q3MO (STARTED A YEAR AGO)
     Route: 065
  14. CALCIUM [Concomitant]
     Active Substance: CALCIUM
     Indication: Prophylaxis

REACTIONS (17)
  - Cerebrovascular accident [Recovered/Resolved]
  - Asthenia [Not Recovered/Not Resolved]
  - Weight decreased [Not Recovered/Not Resolved]
  - Decreased appetite [Not Recovered/Not Resolved]
  - Fatigue [Unknown]
  - Decreased immune responsiveness [Not Recovered/Not Resolved]
  - Dermatitis allergic [Recovered/Resolved]
  - Rash [Unknown]
  - Dermatitis allergic [Recovered/Resolved]
  - Tumour marker abnormal [Recovering/Resolving]
  - Hypotension [Not Recovered/Not Resolved]
  - Nasopharyngitis [Recovered/Resolved]
  - Pyrexia [Recovered/Resolved]
  - Speech disorder [Recovered/Resolved]
  - Dehydration [Unknown]
  - Off label use [Not Recovered/Not Resolved]
  - Feeding disorder [Unknown]

NARRATIVE: CASE EVENT DATE: 20220201
